FAERS Safety Report 8801954 (Version 3)
Quarter: 2015Q2

REPORT INFORMATION
  Report Type: Report from Study
  Country: US (occurrence: US)
  Receive Date: 20120921
  Receipt Date: 20150616
  Transmission Date: 20150821
  Serious: Yes (Death)
  Sender: FDA-Public Use
  Company Number: US-ROCHE-1122722

PATIENT
  Sex: Female
  Weight: 75 kg

DRUGS (10)
  1. CARBOPLATIN. [Concomitant]
     Active Substance: CARBOPLATIN
     Dosage: 30/MAY/2006
     Route: 065
     Dates: start: 20060502
  2. REGLAN [Concomitant]
     Active Substance: METOCLOPRAMIDE HYDROCHLORIDE
     Dosage: 30/MAY/2006, 13/JUN/2006
     Route: 065
     Dates: start: 20060502
  3. NEULASTA [Concomitant]
     Active Substance: PEGFILGRASTIM
     Dosage: 31/MAY/2006
     Route: 058
     Dates: start: 20060503
  4. ARANESP [Concomitant]
     Active Substance: DARBEPOETIN ALFA
     Route: 058
     Dates: start: 20060425
  5. LOMUSTINE. [Concomitant]
     Active Substance: LOMUSTINE
  6. AVASTIN [Suspect]
     Active Substance: BEVACIZUMAB
     Indication: BRAIN NEOPLASM MALIGNANT
     Dosage: 14/FEB/2006, 28/FEB/2006, 14/MAR/2006, 28/MAR/2006, 14/APR/2006, 25/APR/2006, 12/MAY/2006, 30/MAY/20
     Route: 042
  7. IRINOTECAN [Concomitant]
     Active Substance: IRINOTECAN
  8. ALOXI [Concomitant]
     Active Substance: PALONOSETRON HYDROCHLORIDE
     Dosage: 30/MAY/2006
     Route: 065
     Dates: start: 20060502
  9. ARANESP [Concomitant]
     Active Substance: DARBEPOETIN ALFA
     Route: 058
     Dates: start: 20050919
  10. AVASTIN [Suspect]
     Active Substance: BEVACIZUMAB
     Indication: BRAIN NEOPLASM MALIGNANT

REACTIONS (2)
  - Death [Fatal]
  - Off label use [Unknown]
